FAERS Safety Report 7410239-9 (Version None)
Quarter: 2011Q2

REPORT INFORMATION
  Report Type: 
  Country: None (occurrence: None)
  Receive Date: 20110412
  Receipt Date: 20110401
  Transmission Date: 20111010
  Serious: Yes (Other)
  Sender: FDA-Public Use
  Company Number: US-BAYER-2011-029598

PATIENT
  Sex: Female
  Weight: 119 kg

DRUGS (3)
  1. ZETIA [Concomitant]
  2. BAYER EXTRA STRENGTH BACK + BODY PAIN [Suspect]
     Indication: BACK PAIN
     Dosage: 2 DF, UNK
     Route: 048
  3. BENICAR HCT [Concomitant]

REACTIONS (2)
  - GASTRIC HAEMORRHAGE [None]
  - ABDOMINAL PAIN UPPER [None]
